FAERS Safety Report 9511442 (Version 1)
Quarter: 2013Q1

REPORT INFORMATION
  Report Type: Spontaneous
  Country: US (occurrence: None)
  Receive Date: 20130305
  Receipt Date: 20130305
  Transmission Date: 20140127
  Serious: Yes (Other)
  Sender: FDA-Public Use
  Company Number: 163-21880-12103340

PATIENT
  Age: 66 Year
  Sex: Male

DRUGS (8)
  1. REVLIMID [Suspect]
     Indication: PLASMA CELL MYELOMA
     Dosage: 15 MG, 1 IN 1 D, PO
     Route: 048
     Dates: start: 20120622
  2. PAXIL (PAROXETINE HYDROCHLORIDE) [Concomitant]
  3. DOXAZOSIN (DOXAZOSIN) [Concomitant]
  4. ACYCLOVIR (ACICLOVIR) [Concomitant]
  5. NITROGLYCERIN (GLYCERYL TRINITRATE) [Concomitant]
  6. DILTIAZEM [Concomitant]
  7. VITAMIN D (ERGOCALCIFEROL) [Concomitant]
  8. DOCUSATE (DOCUSATE) [Concomitant]

REACTIONS (1)
  - Neutropenia [None]
